FAERS Safety Report 23814310 (Version 3)
Quarter: 2025Q4

REPORT INFORMATION
  Report Type: Spontaneous
  Country: US (occurrence: US)
  Receive Date: 20240503
  Receipt Date: 20251031
  Transmission Date: 20260118
  Serious: Yes (Other)
  Sender: RANBAXY
  Company Number: US-SUN PHARMACEUTICAL INDUSTRIES LTD-2024R1-428865

PATIENT
  Sex: Female

DRUGS (1)
  1. ILUMYA [Suspect]
     Active Substance: TILDRAKIZUMAB-ASMN
     Indication: Psoriasis
     Dosage: UNK, EVERY 12 WEEKS
     Route: 058
     Dates: start: 20230920

REACTIONS (3)
  - Malignant melanoma stage 0 [Unknown]
  - Skin lesion [Unknown]
  - Product dose omission issue [Unknown]
